FAERS Safety Report 6865856-1 (Version None)
Quarter: 2010Q3

REPORT INFORMATION
  Report Type: 
  Country: None (occurrence: None)
  Receive Date: 20100722
  Receipt Date: 20100713
  Transmission Date: 20110219
  Serious: Yes (Other)
  Sender: FDA-Public Use
  Company Number: US-BIOGENIDEC-2010BI023748

PATIENT
  Age: 0 Day
  Sex: Female
  Weight: 3 kg

DRUGS (1)
  1. TYSABRI [Suspect]
     Indication: DRUG EXPOSURE DURING PREGNANCY
     Dosage: PRIOR TO CONCEPTION
     Route: 064
     Dates: start: 20080731, end: 20090815

REACTIONS (1)
  - HIP DYSPLASIA [None]
